FAERS Safety Report 18149518 (Version 3)
Quarter: 2020Q3

REPORT INFORMATION
  Report Type: Spontaneous
  Country: US (occurrence: US)
  Receive Date: 20200814
  Receipt Date: 20200827
  Transmission Date: 20201103
  Serious: No
  Sender: FDA-Public Use
  Company Number: US-009507513-2008USA008671

PATIENT
  Age: 24 Year
  Sex: Male

DRUGS (1)
  1. PROPECIA [Suspect]
     Active Substance: FINASTERIDE
     Indication: ALOPECIA
     Dosage: 1 TABLET ONCE DAILY (QD)
     Route: 048
     Dates: start: 202005

REACTIONS (1)
  - Sebaceous hyperplasia [Not Recovered/Not Resolved]

NARRATIVE: CASE EVENT DATE: 202006
